FAERS Safety Report 9282609 (Version 5)
Quarter: 2013Q2

REPORT INFORMATION
  Report Type: Spontaneous
  Country: FR (occurrence: FR)
  Receive Date: 20130510
  Receipt Date: 20130624
  Transmission Date: 20140414
  Serious: Yes (Hospitalization)
  Sender: FDA-Public Use
  Company Number: FR-PFIZER INC-2013133786

PATIENT
  Age: 84 Year
  Sex: Female

DRUGS (16)
  1. CORDARONE [Suspect]
     Dosage: UNK
     Route: 048
     Dates: start: 20130322, end: 20130410
  2. AMLOR [Suspect]
     Dosage: 1 DF, DAILY
     Route: 048
     Dates: start: 201210, end: 20130327
  3. ALDACTONE [Suspect]
     Dosage: UNK
     Route: 048
     Dates: start: 20130319, end: 20130409
  4. DOLIPRANE [Suspect]
     Dosage: UNK
     Route: 048
     Dates: start: 20130321, end: 20130325
  5. PRADAXA [Suspect]
     Dosage: 110 MG, 2X/DAY
     Route: 048
     Dates: start: 20130320, end: 20130327
  6. MOTILIUM [Suspect]
     Dosage: UNK
     Route: 048
     Dates: start: 20130320, end: 20130325
  7. TANAKAN [Suspect]
     Dosage: UNK
     Route: 048
     Dates: start: 201303, end: 20130325
  8. GAVISCON [Suspect]
     Dosage: UNK
     Route: 048
     Dates: start: 20130321, end: 20130325
  9. HYPERIUM [Suspect]
     Dosage: UNK
     Route: 048
     Dates: start: 201302, end: 20130327
  10. INEXIUM [Concomitant]
     Dosage: UNK
     Route: 048
     Dates: start: 20130321
  11. HYDROCORTISONE [Concomitant]
     Dosage: UNK
  12. SIMVASTATIN [Concomitant]
     Dosage: UNK
  13. LEVOTHYROX [Concomitant]
     Dosage: UNK
  14. MODAMIDE [Concomitant]
     Dosage: UNK
  15. RILMENIDINE [Concomitant]
     Dosage: UNK
  16. AMIODARONE [Concomitant]
     Dosage: UNK

REACTIONS (4)
  - Drug administration error [Recovered/Resolved]
  - Rash maculo-papular [Recovering/Resolving]
  - Skin exfoliation [Recovering/Resolving]
  - Hyponatraemia [Unknown]
